FAERS Safety Report 15056761 (Version 1)
Quarter: 2018Q2

REPORT INFORMATION
  Report Type: Spontaneous
  Country: US (occurrence: US)
  Receive Date: 20180604
  Receipt Date: 20180604
  Transmission Date: 20180711
  Serious: Yes (Other)
  Sender: FDA-Public Use
  Company Number: None

PATIENT
  Age: 67 Year
  Sex: Male
  Weight: 103.5 kg

DRUGS (5)
  1. OMEPRAZOLE DELAYED-RELEASE CAPSULES, USP 40 MG [Suspect]
     Active Substance: OMEPRAZOLE
     Indication: DYSPEPSIA
     Dosage: ?          QUANTITY:1 DF DOSAGE FORM;?
     Route: 048
     Dates: start: 20130601, end: 20180502
  2. TAMSULOSIN HCL [Concomitant]
     Active Substance: TAMSULOSIN HYDROCHLORIDE
  3. ZOCOR [Concomitant]
     Active Substance: SIMVASTATIN
  4. CARVEDILOL. [Concomitant]
     Active Substance: CARVEDILOL
  5. PROBIOTIC DIGESTIVE SYTSEM SUPPORT DIETARY SUPPLEMENT WITH LACTOBACILLUS RHANMNOSUS GG (EQUATE BRAND) [Concomitant]

REACTIONS (3)
  - Clostridium difficile infection [None]
  - Product use issue [None]
  - Gastrointestinal disorder [None]

NARRATIVE: CASE EVENT DATE: 20180426
